FAERS Safety Report 7267656-X (Version None)
Quarter: 2011Q1

REPORT INFORMATION
  Report Type: 
  Country: None (occurrence: None)
  Receive Date: 20110201
  Receipt Date: 20110121
  Transmission Date: 20110831
  Serious: Yes (Hospitalization)
  Sender: FDA-Public Use
  Company Number: DE-ROCHE-717286

PATIENT
  Sex: Female
  Weight: 82 kg

DRUGS (6)
  1. CYCLOPHOSPHAMIDE [Suspect]
     Indication: BREAST CANCER
     Dosage: FREQUENCY: ALL 3 WEEKS, LAST DOSE: 21 JUNE 2010
     Route: 042
     Dates: start: 20100419
  2. LEVOTHYROXINE SODIUM [Concomitant]
     Dates: start: 20060101
  3. DOCETAXEL [Suspect]
     Indication: BREAST CANCER
     Dosage: FREQUENCY: ALL 3 WEEKS, LAST DOSE: 02 AUGUST 2010
     Route: 042
     Dates: start: 20100712
  4. DOCETAXEL [Suspect]
     Dosage: FREQUENCY: ALL THREE WEEKS, DOSE REDUCED
     Route: 042
     Dates: start: 20100802
  5. BEVACIZUMAB [Suspect]
     Indication: BREAST CANCER
     Dosage: FREQUENCY; ALL WEEKS, LAST DOSE: 02 AUGUST 2010
     Route: 042
     Dates: start: 20100419
  6. EPIRUBICIN [Suspect]
     Indication: BREAST CANCER
     Dosage: DOSE: 2X84MG, FREQUENCY: ALL 3 WEEKS, LAST DOSE: 21 JUNE 2010
     Route: 042
     Dates: start: 20100419

REACTIONS (2)
  - MUCOSAL INFLAMMATION [None]
  - NEUTROPENIA [None]
